FAERS Safety Report 7300538-3 (Version None)
Quarter: 2011Q1

REPORT INFORMATION
  Report Type: 
  Country: None (occurrence: None)
  Receive Date: 20110218
  Receipt Date: 20110209
  Transmission Date: 20110831
  Serious: Yes (Other)
  Sender: FDA-Public Use
  Company Number: JP-AMGEN-JPNSP2011008426

PATIENT
  Age: 71 Year
  Sex: Female

DRUGS (4)
  1. CELECOXIB [Concomitant]
     Dosage: 2 TABLETS PER DAY
  2. RHEUMATREX [Concomitant]
     Dosage: 6 MG, WEEKLY
  3. ENBREL [Suspect]
     Indication: RHEUMATOID ARTHRITIS
     Dosage: 50 MG, WEEKLY
     Route: 058
     Dates: start: 20100301, end: 20110111
  4. PREDNISOLONE [Concomitant]
     Dosage: 5 MG, 1X/DAY

REACTIONS (1)
  - OESOPHAGEAL CARCINOMA [None]
